FAERS Safety Report 10204602 (Version 1)
Quarter: 2014Q2

REPORT INFORMATION
  Report Type: Spontaneous
  Country: FR (occurrence: FR)
  Receive Date: 20140529
  Receipt Date: 20140529
  Transmission Date: 20141212
  Serious: Yes (Life-Threatening, Hospitalization)
  Sender: FDA-Public Use
  Company Number: PHHY2014FR065495

PATIENT
  Age: 35 Year
  Sex: Female

DRUGS (7)
  1. LEPONEX [Suspect]
     Dosage: 100 MG, TID
     Route: 048
     Dates: end: 20140420
  2. LEPONEX [Suspect]
     Dosage: 3 G, SINGLE (30 TABLETS)
     Route: 048
     Dates: start: 20140420, end: 20140420
  3. ZOLPIDEM [Suspect]
     Dosage: 20 DF, SINGLE
     Dates: start: 20140420, end: 20140420
  4. LAMICTAL [Suspect]
     Dosage: 100 MG, DAILY
     Route: 048
     Dates: end: 20140420
  5. LAMICTAL [Suspect]
     Dosage: 2.4 G, SINGLE (24 TABLET)
     Route: 048
     Dates: start: 20140420, end: 20140420
  6. TERALHITE [Suspect]
     Dosage: 1575 MG, DAILY
     Route: 048
     Dates: end: 20140420
  7. TERALHITE [Suspect]
     Dosage: 18.4 G, SINGLE (46 TABLETS)
     Route: 048
     Dates: start: 20140420, end: 20140420

REACTIONS (3)
  - Coma [Recovered/Resolved]
  - Respiratory distress [Recovered/Resolved]
  - Pneumonia aspiration [Recovered/Resolved]
